FAERS Safety Report 14751765 (Version 2)
Quarter: 2018Q2

REPORT INFORMATION
  Report Type: Report from Study
  Country: US (occurrence: US)
  Receive Date: 20180412
  Receipt Date: 20180420
  Transmission Date: 20180711
  Serious: Yes (Other)
  Sender: FDA-Public Use
  Company Number: US-JAZZ-2018-US-005700

PATIENT
  Age: 41 Year
  Sex: Female

DRUGS (45)
  1. XYREM [Suspect]
     Active Substance: SODIUM OXYBATE
     Dosage: 3 G, BID
     Route: 048
     Dates: start: 201310, end: 201311
  2. PROPRANOLOL [Concomitant]
     Active Substance: PROPRANOLOL HYDROCHLORIDE
  3. CLINDAMYCIN HYDROCHLORIDE. [Concomitant]
     Active Substance: CLINDAMYCIN HYDROCHLORIDE
  4. RISPERDAL [Concomitant]
     Active Substance: RISPERIDONE
  5. MELATONIN [Concomitant]
     Active Substance: MELATONIN
  6. EFFEXOR [Concomitant]
     Active Substance: VENLAFAXINE HYDROCHLORIDE
  7. ALPRAZOLAM. [Concomitant]
     Active Substance: ALPRAZOLAM
  8. AMBIEN [Concomitant]
     Active Substance: ZOLPIDEM TARTRATE
  9. HALCION [Concomitant]
     Active Substance: TRIAZOLAM
  10. LEXAPRO [Concomitant]
     Active Substance: ESCITALOPRAM OXALATE
  11. REMERON [Concomitant]
     Active Substance: MIRTAZAPINE
  12. ROBAXIN [Concomitant]
     Active Substance: METHOCARBAMOL
  13. BUPROPION HCL [Concomitant]
     Active Substance: BUPROPION HYDROCHLORIDE
  14. MAGNESIUM OXIDE. [Concomitant]
     Active Substance: MAGNESIUM OXIDE
  15. AMITRIPTYLINE HCL [Concomitant]
     Active Substance: AMITRIPTYLINE
  16. KLOR-CON [Concomitant]
     Active Substance: POTASSIUM CHLORIDE
  17. ACANYA [Concomitant]
     Active Substance: BENZOYL PEROXIDE\CLINDAMYCIN PHOSPHATE
  18. DIFFERIN [Concomitant]
     Active Substance: ADAPALENE
  19. GABAPENTIN. [Concomitant]
     Active Substance: GABAPENTIN
  20. XYREM [Suspect]
     Active Substance: SODIUM OXYBATE
     Indication: NARCOLEPSY
     Dosage: 2.25 G, BID
     Route: 048
     Dates: start: 200709, end: 200711
  21. CYCLOBENZAPRINE. [Concomitant]
     Active Substance: CYCLOBENZAPRINE
  22. DOXEPIN [Concomitant]
     Active Substance: DOXEPIN
  23. XANAX [Concomitant]
     Active Substance: ALPRAZOLAM
  24. HYDROCHLOROTHIAZIDE. [Concomitant]
     Active Substance: HYDROCHLOROTHIAZIDE
  25. ZALEPLON. [Concomitant]
     Active Substance: ZALEPLON
  26. BACLOFEN. [Concomitant]
     Active Substance: BACLOFEN
  27. CALCIUM + VIT D [Concomitant]
     Active Substance: CALCIUM\VITAMIN D
  28. LAMICTAL [Concomitant]
     Active Substance: LAMOTRIGINE
  29. XYREM [Suspect]
     Active Substance: SODIUM OXYBATE
     Indication: CATAPLEXY
     Dosage: DOSE ADJUSTMENT
     Route: 048
     Dates: start: 200711, end: 200910
  30. DIPHENHYDRAMINE HYDROCHLORIDE. [Concomitant]
     Active Substance: DIPHENHYDRAMINE HYDROCHLORIDE
  31. CEFADROXIL. [Concomitant]
     Active Substance: CEFADROXIL
  32. CLONAZEPAM. [Concomitant]
     Active Substance: CLONAZEPAM
  33. DIPHENOXYLATE/ATROPINE [Concomitant]
     Active Substance: ATROPINE\DIPHENOXYLATE
  34. MODAFINIL. [Concomitant]
     Active Substance: MODAFINIL
  35. ONDANSETRON [Concomitant]
     Active Substance: ONDANSETRON
  36. XYREM [Suspect]
     Active Substance: SODIUM OXYBATE
     Indication: CATAPLEXY
     Dosage: 4.5 G, BID
     Route: 048
     Dates: start: 200910, end: 2010
  37. XYREM [Suspect]
     Active Substance: SODIUM OXYBATE
     Dosage: DOSE ADJUSTMENT
     Route: 048
     Dates: start: 201311, end: 201701
  38. XYREM [Suspect]
     Active Substance: SODIUM OXYBATE
     Dosage: 4.5 G, BID
     Route: 048
     Dates: start: 201701
  39. IBUPROFEN. [Concomitant]
     Active Substance: IBUPROFEN
  40. RANITIDINE. [Concomitant]
     Active Substance: RANITIDINE
  41. MELOXICAM. [Concomitant]
     Active Substance: MELOXICAM
  42. TRAZODONE [Concomitant]
     Active Substance: TRAZODONE HYDROCHLORIDE
  43. DULOXETINE HCL [Concomitant]
     Active Substance: DULOXETINE HYDROCHLORIDE
  44. ROZEREM [Concomitant]
     Active Substance: RAMELTEON
  45. SPIRONOLACTONE. [Concomitant]
     Active Substance: SPIRONOLACTONE

REACTIONS (2)
  - Blood pressure increased [Unknown]
  - Alcohol abuse [Unknown]

NARRATIVE: CASE EVENT DATE: 20180405
